FAERS Safety Report 9124995 (Version 1)
Quarter: 2013Q1

REPORT INFORMATION
  Report Type: Spontaneous
  Country: US (occurrence: US)
  Receive Date: 20130227
  Receipt Date: 20130227
  Transmission Date: 20140127
  Serious: Yes (Other)
  Sender: FDA-Public Use
  Company Number: PHEH2013US004627

PATIENT
  Sex: Female

DRUGS (1)
  1. DIOVAN [Suspect]

REACTIONS (2)
  - Lower limb fracture [Unknown]
  - Fall [Unknown]
